FAERS Safety Report 8512489-7 (Version None)
Quarter: 2012Q3

REPORT INFORMATION
  Report Type: 
  Country: None (occurrence: None)
  Receive Date: 20120716
  Receipt Date: 20120709
  Transmission Date: 20120928
  Serious: Yes (Congenital Anomaly)
  Sender: FDA-Public Use
  Company Number: US-GLAXOSMITHKLINE-A0935510A

PATIENT
  Sex: Male

DRUGS (6)
  1. VISTARIL [Concomitant]
     Indication: ANXIETY
     Dates: start: 20070201
  2. SERTRALINE HYDROCHLORIDE [Concomitant]
     Dates: start: 20071001
  3. PAXIL CR [Suspect]
     Indication: ANXIETY
     Dosage: 37.5MG PER DAY
     Route: 064
     Dates: start: 20070227, end: 20071001
  4. ZOLOFT [Concomitant]
     Route: 064
     Dates: start: 20070101
  5. VISTARIL [Concomitant]
  6. MULTI-VITAMINS [Concomitant]

REACTIONS (9)
  - PULMONARY HYPOPLASIA [None]
  - CONGENITAL MUSCULOSKELETAL ANOMALY [None]
  - VACTERL SYNDROME [None]
  - RENAL DYSPLASIA [None]
  - DEXTROCARDIA [None]
  - CONGENITAL PULMONARY ARTERY ANOMALY [None]
  - PULMONARY APLASIA [None]
  - CONGENITAL PULMONARY HYPERTENSION [None]
  - FOETAL EXPOSURE DURING PREGNANCY [None]
